FAERS Safety Report 23741487 (Version 1)
Quarter: 2024Q2

REPORT INFORMATION
  Report Type: Spontaneous
  Country: NO (occurrence: NO)
  Receive Date: 20240415
  Receipt Date: 20240415
  Transmission Date: 20240716
  Serious: Yes (Other)
  Sender: FDA-Public Use
  Company Number: None

PATIENT
  Age: 60 Year
  Sex: Male
  Weight: 99 kg

DRUGS (2)
  1. LISDEXAMFETAMINE DIMESYLATE [Suspect]
     Active Substance: LISDEXAMFETAMINE DIMESYLATE
     Indication: Attention deficit hyperactivity disorder
     Route: 048
     Dates: start: 202311, end: 202402
  2. ESOMEPRAZOL KRKA [Concomitant]
     Indication: Oesophagitis
     Dosage: ENTEROCAPS
     Route: 065

REACTIONS (8)
  - Suicidal ideation [Recovered/Resolved]
  - Fatigue [Unknown]
  - Asthenia [Unknown]
  - Emotional poverty [Unknown]
  - Product substitution issue [Unknown]
  - Depressed mood [Unknown]
  - Headache [Unknown]
  - Negative thoughts [Unknown]

NARRATIVE: CASE EVENT DATE: 20240101
